FAERS Safety Report 22277397 (Version 2)
Quarter: 2024Q2

REPORT INFORMATION
  Report Type: Report from Study
  Country: CA (occurrence: CA)
  Receive Date: 20230503
  Receipt Date: 20240508
  Transmission Date: 20240715
  Serious: Yes (Other)
  Sender: FDA-Public Use
  Company Number: CA-BIOGEN-2023BI01202701

PATIENT
  Age: 66 Year
  Sex: Male

DRUGS (1)
  1. DALFAMPRIDINE [Suspect]
     Active Substance: DALFAMPRIDINE
     Indication: Multiple sclerosis
     Route: 050
     Dates: start: 20170919

REACTIONS (7)
  - Retinal detachment [Recovered/Resolved]
  - Physical deconditioning [Not Recovered/Not Resolved]
  - Urinary retention [Recovered/Resolved]
  - Vertigo positional [Unknown]
  - Retinal tear [Unknown]
  - Gait disturbance [Unknown]
  - Balance disorder [Unknown]

NARRATIVE: CASE EVENT DATE: 20221101
